FAERS Safety Report 20815864 (Version 3)
Quarter: 2023Q2

REPORT INFORMATION
  Report Type: Spontaneous
  Country: US (occurrence: US)
  Receive Date: 20220511
  Receipt Date: 20230501
  Transmission Date: 20230721
  Serious: Yes (Other)
  Sender: FDA-Public Use
  Company Number: US-BRISTOL-MYERS SQUIBB COMPANY-2022-025519

PATIENT
  Age: 64 Year
  Sex: Male
  Weight: 96.2 kg

DRUGS (1)
  1. ABECMA [Suspect]
     Active Substance: IDECABTAGENE VICLEUCEL
     Indication: Plasma cell myeloma
     Dosage: DOSE : 1;     FREQ : UNAVAILABLE
     Route: 042
     Dates: start: 20220217, end: 20220217

REACTIONS (9)
  - Cytokine release syndrome [Recovered/Resolved]
  - Hypoalbuminaemia [Recovered/Resolved]
  - Fatigue [Recovered/Resolved]
  - Immune effector cell-associated neurotoxicity syndrome [Recovered/Resolved]
  - Aspartate aminotransferase increased [Recovered/Resolved]
  - Tremor [Not Recovered/Not Resolved]
  - Alanine aminotransferase [Recovered/Resolved]
  - Brain oedema [Recovered/Resolved]
  - Headache [Recovered/Resolved]

NARRATIVE: CASE EVENT DATE: 20220217
